FAERS Safety Report 5317865-1 (Version None)
Quarter: 2007Q2

REPORT INFORMATION
  Report Type: 
  Country: None (occurrence: None)
  Receive Date: 20070507
  Receipt Date: 20070430
  Transmission Date: 20071010
  Serious: Yes (Other)
  Sender: FDA-Public Use
  Company Number: US-ASTRAZENECA-2006UW25447

PATIENT
  Age: 43 Year
  Sex: Male
  Weight: 118.2 kg

DRUGS (2)
  1. SEROQUEL [Suspect]
     Indication: DEPRESSION
     Route: 048
     Dates: start: 20050101, end: 20060401
  2. LEXAPRO [Concomitant]

REACTIONS (3)
  - BLINDNESS [None]
  - DIABETES MELLITUS NON-INSULIN-DEPENDENT [None]
  - RENAL DISORDER [None]
